FAERS Safety Report 9462995 (Version 4)
Quarter: 2014Q3

REPORT INFORMATION
  Report Type: Spontaneous
  Country: US (occurrence: US)
  Receive Date: 20130816
  Receipt Date: 20140822
  Transmission Date: 20150326
  Serious: Yes (Hospitalization, Other)
  Sender: FDA-Public Use
  Company Number: US-UCBSA-087781

PATIENT
  Sex: Male
  Weight: 113 kg

DRUGS (9)
  1. ZONISAMIDE. [Concomitant]
     Active Substance: ZONISAMIDE
     Indication: CONVULSION
     Dosage: 100 MG 2 TABLETS QHS
  2. DEPAKOTE [Concomitant]
     Active Substance: DIVALPROEX SODIUM
     Dosage: 2000MG AT NIGHT
  3. EFFEXOR [Concomitant]
     Active Substance: VENLAFAXINE HYDROCHLORIDE
     Indication: MOOD SWINGS
     Dosage: 150 MG QHS
  4. EFFEXOR [Concomitant]
     Active Substance: VENLAFAXINE HYDROCHLORIDE
     Indication: HEADACHE
     Dosage: 300MG AT HS
  5. VIMPAT [Suspect]
     Active Substance: LACOSAMIDE
     Indication: CONVULSION
     Dosage: 100MG IN THE MORNING, 100MG IN THE AFTERNOON AND 200MG AT NIGHT.
     Dates: start: 201006
  6. DEPAKOTE [Concomitant]
     Active Substance: DIVALPROEX SODIUM
  7. ZONISAMIDE. [Concomitant]
     Active Substance: ZONISAMIDE
     Dosage: 300MG AT NIGHT
  8. ETHOSUXIMIDE. [Concomitant]
     Active Substance: ETHOSUXIMIDE
     Dosage: D/C ON 23-MAY-2013
  9. DIVALPROEX ER [Concomitant]
     Active Substance: DIVALPROEX SODIUM
     Dosage: 4 TABLETS QHS

REACTIONS (8)
  - Fatigue [Unknown]
  - Confusional state [Unknown]
  - Generalised tonic-clonic seizure [Not Recovered/Not Resolved]
  - Headache [Unknown]
  - General physical health deterioration [Unknown]
  - Inappropriate schedule of drug administration [Unknown]
  - Convulsion [Not Recovered/Not Resolved]
  - Petit mal epilepsy [Not Recovered/Not Resolved]

NARRATIVE: CASE EVENT DATE: 2012
